FAERS Safety Report 13840117 (Version 5)
Quarter: 2017Q4

REPORT INFORMATION
  Report Type: Spontaneous
  Country: US (occurrence: US)
  Receive Date: 20170807
  Receipt Date: 20171003
  Transmission Date: 20180320
  Serious: Yes (Hospitalization, Other)
  Sender: FDA-Public Use
  Company Number: PHEH2017US024557

PATIENT
  Age: 65 Year
  Sex: Male

DRUGS (3)
  1. STELARA [Suspect]
     Active Substance: USTEKINUMAB
     Indication: PSORIASIS
     Dosage: 90 MG, UNK
     Route: 058
     Dates: start: 20160202, end: 20170411
  2. COSENTYX [Suspect]
     Active Substance: SECUKINUMAB
     Indication: PSORIASIS
     Dosage: 300 MG, WEEKLY FOR 5 WEEKS THEN ONCE A MONTH
     Route: 058
     Dates: start: 20170425, end: 201706
  3. ALLOPURINOL. [Suspect]
     Active Substance: ALLOPURINOL
     Indication: PRODUCT USED FOR UNKNOWN INDICATION
     Dosage: 300 MG, UNK
     Route: 048

REACTIONS (1)
  - Cellulitis streptococcal [Recovered/Resolved with Sequelae]

NARRATIVE: CASE EVENT DATE: 20170805
